FAERS Safety Report 8153687-4 (Version None)
Quarter: 2012Q1

REPORT INFORMATION
  Report Type: 
  Country: None (occurrence: None)
  Receive Date: 20120221
  Receipt Date: 20120210
  Transmission Date: 20120608
  Serious: Yes (Death)
  Sender: FDA-Public Use
  Company Number: TR-ALEXION PHARMACEUTICALS INC.-A201200244

PATIENT
  Sex: Female

DRUGS (4)
  1. SOLIRIS [Suspect]
     Indication: HAEMOLYTIC URAEMIC SYNDROME
     Dosage: 300 MG, QW
     Route: 042
     Dates: start: 20120204, end: 20120204
  2. FLUCONAZOLE [Concomitant]
     Indication: SEPSIS
     Dosage: 7.5 MG, QD
     Route: 042
     Dates: start: 20120204, end: 20120205
  3. MEROPENEM [Concomitant]
     Indication: SEPSIS
     Dosage: 50 MG, QD
     Route: 042
     Dates: start: 20120204, end: 20120205
  4. VANCOMYCIN [Concomitant]
     Indication: SEPSIS
     Dosage: 25 MG, QD
     Route: 042
     Dates: start: 20120201, end: 20120205

REACTIONS (1)
  - CARDIO-RESPIRATORY ARREST [None]
